FAERS Safety Report 5128728-9 (Version None)
Quarter: 2006Q4

REPORT INFORMATION
  Report Type: 
  Country: None (occurrence: None)
  Receive Date: 20061017
  Receipt Date: 20060809
  Transmission Date: 20070319
  Serious: Yes (Other)
  Sender: FDA-Public Use
  Company Number: JP-GILEAD-2006-0010005

PATIENT
  Sex: Male

DRUGS (10)
  1. HEPSERA [Suspect]
     Indication: DRUG USE FOR UNKNOWN INDICATION
     Route: 048
     Dates: start: 20040219, end: 20060707
  2. HEPSERA [Suspect]
     Route: 048
     Dates: start: 20060708
  3. IOPAMIRON [Suspect]
     Indication: DRUG USE FOR UNKNOWN INDICATION
  4. LAMIVUDINE [Concomitant]
     Dates: start: 20020101
  5. FAMOTIDINE [Concomitant]
     Dates: start: 20020101
  6. FAMOTIDINE [Concomitant]
     Dates: start: 20020101
  7. ATENOLOL [Concomitant]
     Dates: start: 20020101
  8. ATENOLOL [Concomitant]
     Dates: start: 20020101
  9. DIGOXIN [Concomitant]
     Dates: start: 20020101
  10. DIGOXIN [Concomitant]
     Dates: start: 20020101

REACTIONS (2)
  - BLOOD CREATININE INCREASED [None]
  - RENAL IMPAIRMENT [None]
